FAERS Safety Report 9916298 (Version 2)
Quarter: 2014Q1

REPORT INFORMATION
  Report Type: Spontaneous
  Country: US (occurrence: US)
  Receive Date: 20140221
  Receipt Date: 20140221
  Transmission Date: 20141002
  Serious: Yes (Disabling)
  Sender: FDA-Public Use
  Company Number: US-GE HEALTHCARE MEDICAL DIAGNOSTICS-OSCN-PR-0709S-0367

PATIENT
  Age: 38 Year
  Sex: Female

DRUGS (10)
  1. OMNISCAN [Suspect]
     Indication: CEREBROVASCULAR ACCIDENT
     Route: 042
     Dates: start: 19980611, end: 19980611
  2. OMNISCAN [Suspect]
     Indication: VASCULITIS
     Route: 042
     Dates: start: 19980627, end: 19980627
  3. OMNISCAN [Suspect]
     Indication: INFECTION
     Route: 042
     Dates: start: 19990214, end: 19990214
  4. OMNISCAN [Suspect]
     Indication: SYSTEMIC LUPUS ERYTHEMATOSUS
     Route: 042
     Dates: start: 19990309, end: 19990309
  5. OMNISCAN [Suspect]
     Indication: EXTRADURAL ABSCESS
     Route: 042
     Dates: start: 19990628, end: 19990628
  6. GADOLINIUM (UNSPECIFIED) [Suspect]
     Indication: CEREBRAL INFARCTION
     Route: 042
     Dates: start: 19991216, end: 19991216
  7. GADOLINIUM (UNSPECIFIED) [Suspect]
     Indication: CONVULSION
     Dates: start: 20080405
  8. GADOLINIUM (UNSPECIFIED) [Suspect]
     Indication: OSTEOPENIA
  9. GADOLINIUM (UNSPECIFIED) [Suspect]
     Indication: OSTEOARTHRITIS
  10. OPTIMARK [Suspect]
     Indication: CEREBROVASCULAR ACCIDENT
     Route: 042
     Dates: start: 20011118, end: 20011118

REACTIONS (1)
  - Nephrogenic systemic fibrosis [Not Recovered/Not Resolved]
